FAERS Safety Report 10039934 (Version 1)
Quarter: 2014Q1

REPORT INFORMATION
  Report Type: Spontaneous
  Country: FR (occurrence: FR)
  Receive Date: 20140326
  Receipt Date: 20140326
  Transmission Date: 20141002
  Serious: Yes (Hospitalization, Other)
  Sender: FDA-Public Use
  Company Number: FR-JNJFOC-20140312522

PATIENT
  Age: 24 Year
  Sex: Male

DRUGS (5)
  1. REMICADE [Suspect]
     Indication: CROHN^S DISEASE
     Route: 042
     Dates: start: 20140226
  2. REMICADE [Suspect]
     Indication: CROHN^S DISEASE
     Route: 042
     Dates: start: 201308
  3. POLARAMIN [Concomitant]
     Indication: PREMEDICATION
     Route: 065
  4. SOLU MEDROL [Concomitant]
     Indication: PREMEDICATION
     Route: 065
  5. PRIMPERAN [Concomitant]
     Indication: PREMEDICATION
     Route: 065

REACTIONS (3)
  - Vomiting [Recovered/Resolved]
  - Infusion related reaction [Unknown]
  - Malaise [Unknown]
